FAERS Safety Report 16630508 (Version 2)
Quarter: 2019Q3

REPORT INFORMATION
  Report Type: Spontaneous
  Country: DE (occurrence: DE)
  Receive Date: 20190725
  Receipt Date: 20190903
  Transmission Date: 20191004
  Serious: Yes (Hospitalization)
  Sender: FDA-Public Use
  Company Number: DE-TEVA-2019-DE-1079246

PATIENT
  Sex: Female

DRUGS (2)
  1. SIMVASTATIN-RATIOPHARM 80 MG FILMTABLETTEN [Suspect]
     Active Substance: SIMVASTATIN
     Indication: ISCHAEMIC HEART DISEASE PROPHYLAXIS
     Dosage: 160 MILLIGRAM DAILY; 0-0-2
     Route: 048
  2. SIMVASTATIN-RATIOPHARM 80 MG FILMTABLETTEN [Suspect]
     Active Substance: SIMVASTATIN
     Dosage: 80 MILLIGRAM DAILY;
     Route: 048

REACTIONS (5)
  - Muscular weakness [Unknown]
  - Paralysis [Recovering/Resolving]
  - Dyskinesia [Recovering/Resolving]
  - Urinary incontinence [Not Recovered/Not Resolved]
  - Fall [Recovered/Resolved]
